FAERS Safety Report 8688331 (Version 3)
Quarter: 2013Q4

REPORT INFORMATION
  Report Type: Spontaneous
  Country: US (occurrence: US)
  Receive Date: 20120727
  Receipt Date: 20131101
  Transmission Date: 20140711
  Serious: No
  Sender: FDA-Public Use
  Company Number: US-009507513-2012SP036144

PATIENT
  Age: 50 Year
  Sex: Male
  Weight: 54.42 kg

DRUGS (6)
  1. CLARITIN [Suspect]
     Indication: SNEEZING
     Dosage: 10 MG, QD
     Route: 048
     Dates: start: 20120507, end: 20120510
  2. CLARITIN [Suspect]
     Indication: EYE PRURITUS
  3. CLARITIN [Suspect]
     Indication: HYPERSENSITIVITY
  4. CENTRUM SILVER [Concomitant]
     Indication: PRODUCT USED FOR UNKNOWN INDICATION
     Dosage: UNK, UNKNOWN
  5. GINKGO [Concomitant]
     Indication: PRODUCT USED FOR UNKNOWN INDICATION
     Dosage: UNK, UNKNOWN
  6. OMEGA-3 MARINE TRIGLYCERIDES [Concomitant]
     Indication: PRODUCT USED FOR UNKNOWN INDICATION
     Dosage: 1000 MG, BID

REACTIONS (1)
  - No therapeutic response [Unknown]
